FAERS Safety Report 12607178 (Version 1)
Quarter: 2016Q3

REPORT INFORMATION
  Report Type: Spontaneous
  Country: US (occurrence: US)
  Receive Date: 20160729
  Receipt Date: 20160729
  Transmission Date: 20161109
  Serious: Yes (Life-Threatening)
  Sender: FDA-Public Use
  Company Number: US-IGSA-IG004132

PATIENT
  Age: 72 Year
  Sex: Female

DRUGS (1)
  1. FLEBOGAMMA DIF [Suspect]
     Active Substance: HUMAN IMMUNOGLOBULIN G
     Indication: SYSTEMIC LUPUS ERYTHEMATOSUS
     Dates: start: 201401

REACTIONS (5)
  - Chills [Unknown]
  - Headache [Unknown]
  - Dysarthria [Unknown]
  - Anaphylactic reaction [Unknown]
  - Back pain [Unknown]

NARRATIVE: CASE EVENT DATE: 201401
